FAERS Safety Report 19671342 (Version 1)
Quarter: 2021Q3

REPORT INFORMATION
  Report Type: Report from Study
  Country: US (occurrence: US)
  Receive Date: 20210806
  Receipt Date: 20210806
  Transmission Date: 20211014
  Serious: Yes (Other)
  Sender: FDA-Public Use
  Company Number: US-JNJFOC-20210762683

PATIENT
  Age: 73 Year
  Sex: Female

DRUGS (1)
  1. ELMIRON [Suspect]
     Active Substance: PENTOSAN POLYSULFATE SODIUM
     Indication: CYSTITIS INTERSTITIAL
     Dosage: FOR 14 YEARS
     Route: 065

REACTIONS (7)
  - Retinal depigmentation [Unknown]
  - Maculopathy [Unknown]
  - Retinal degeneration [Unknown]
  - Product use issue [Unknown]
  - Vitreous detachment [Unknown]
  - Macular degeneration [Unknown]
  - Off label use [Unknown]
